FAERS Safety Report 20479780 (Version 1)
Quarter: 2022Q1

REPORT INFORMATION
  Report Type: Report from Study
  Country: AU (occurrence: AU)
  Receive Date: 20220216
  Receipt Date: 20220216
  Transmission Date: 20220423
  Serious: Yes (Other)
  Sender: FDA-Public Use
  Company Number: AU-TEVA-2022-AU-2007872

PATIENT
  Sex: Male

DRUGS (1)
  1. TESTOSTERONE [Suspect]
     Active Substance: TESTOSTERONE
     Dosage: 40 WEEKS OF INTRAMUSCULAR TESTOSTERONE UNDECANOATE THERAPY
     Route: 030

REACTIONS (2)
  - Sepsis [Unknown]
  - Acute myocardial infarction [Unknown]
